FAERS Safety Report 12959517 (Version 1)
Quarter: 2016Q4

REPORT INFORMATION
  Report Type: Spontaneous
  Country: US (occurrence: US)
  Receive Date: 20161118
  Receipt Date: 20161118
  Transmission Date: 20170207
  Serious: Yes (Other)
  Sender: FDA-Public Use
  Company Number: None

PATIENT
  Age: 78 Year
  Sex: Female
  Weight: 90 kg

DRUGS (10)
  1. FLECAINIDE 50MG [Suspect]
     Active Substance: FLECAINIDE
     Indication: ATRIAL FIBRILLATION
     Dosage: ?          QUANTITY:1 TABLET(S);?
     Route: 048
     Dates: start: 20160910, end: 20161117
  2. METOPROLOL. [Concomitant]
     Active Substance: METOPROLOL
  3. BENAZAPRIL [Concomitant]
  4. HCTZ [Concomitant]
     Active Substance: HYDROCHLOROTHIAZIDE
  5. LIPITOR [Concomitant]
     Active Substance: ATORVASTATIN CALCIUM
  6. EXEMESTANE. [Concomitant]
     Active Substance: EXEMESTANE
  7. FISH OIL [Concomitant]
     Active Substance: FISH OIL
  8. MULTIVITAMIN [Concomitant]
     Active Substance: VITAMINS
  9. COQ10 [Concomitant]
     Active Substance: UBIDECARENONE
  10. ELIQUIS [Concomitant]
     Active Substance: APIXABAN

REACTIONS (5)
  - Insomnia [None]
  - Atrial flutter [None]
  - Malaise [None]
  - Peripheral swelling [None]
  - Joint swelling [None]

NARRATIVE: CASE EVENT DATE: 20161005
